FAERS Safety Report 8434087 (Version 5)
Quarter: 2013Q3

REPORT INFORMATION
  Report Type: Spontaneous
  Country: US (occurrence: None)
  Receive Date: 20120217
  Receipt Date: 20130815
  Transmission Date: 20140515
  Serious: Yes (Hospitalization, Other)
  Sender: FDA-Public Use
  Company Number: ADR-2011-11695

PATIENT
  Sex: Female

DRUGS (5)
  1. BACLOFEN [Suspect]
     Indication: PAIN
  2. BACLOFEN [Suspect]
     Indication: BACK PAIN
  3. BUPIVACAINE [Concomitant]
  4. MORPHINE [Concomitant]
  5. SALINE [Concomitant]

REACTIONS (24)
  - Pain in extremity [None]
  - Device dislocation [None]
  - Constipation [None]
  - Bladder disorder [None]
  - Pain [None]
  - Road traffic accident [None]
  - Implant site pain [None]
  - Hypoaesthesia [None]
  - Paralysis [None]
  - Spinal disorder [None]
  - Mass [None]
  - Inflammation [None]
  - Muscle spasms [None]
  - Gastrointestinal disorder [None]
  - Fall [None]
  - Intervertebral disc protrusion [None]
  - Peroneal nerve palsy [None]
  - Device ineffective [None]
  - Gastritis [None]
  - Drug withdrawal syndrome [None]
  - Adverse event [None]
  - Back pain [None]
  - Sensory loss [None]
  - Infusion [None]
